FAERS Safety Report 20860849 (Version 2)
Quarter: 2022Q3

REPORT INFORMATION
  Report Type: Spontaneous
  Country: US (occurrence: US)
  Receive Date: 20220523
  Receipt Date: 20220808
  Transmission Date: 20221027
  Serious: Yes (Other)
  Sender: FDA-Public Use
  Company Number: US-BAYER-2022A072678

PATIENT
  Age: 42 Year
  Sex: Female
  Weight: 87.9 kg

DRUGS (1)
  1. MIRENA [Suspect]
     Active Substance: LEVONORGESTREL
     Indication: Contraception
     Dosage: 20?G/DAY
     Route: 015
     Dates: start: 20220303

REACTIONS (3)
  - Embedded device [Not Recovered/Not Resolved]
  - Vaginal haemorrhage [None]
  - Device difficult to use [None]

NARRATIVE: CASE EVENT DATE: 20220407
